FAERS Safety Report 17722453 (Version 2)
Quarter: 2020Q3

REPORT INFORMATION
  Report Type: Spontaneous
  Country: US (occurrence: US)
  Receive Date: 20200429
  Receipt Date: 20200818
  Transmission Date: 20201102
  Serious: No
  Sender: FDA-Public Use
  Company Number: US-PFIZER INC-2020171909

PATIENT
  Age: 73 Year
  Sex: Female

DRUGS (1)
  1. CELECOXIB. [Suspect]
     Active Substance: CELECOXIB
     Dosage: UNK

REACTIONS (3)
  - Drug hypersensitivity [Unknown]
  - Rash [Unknown]
  - Urticaria [Unknown]
